FAERS Safety Report 23525672 (Version 1)
Quarter: 2024Q1

REPORT INFORMATION
  Report Type: Spontaneous
  Country: CA (occurrence: CA)
  Receive Date: 20240215
  Receipt Date: 20240215
  Transmission Date: 20240409
  Serious: Yes (Hospitalization)
  Sender: FDA-Public Use
  Company Number: CA-Amarin Pharma  Inc-2024AMR000055

PATIENT
  Sex: Male

DRUGS (1)
  1. VASCEPA [Suspect]
     Active Substance: ICOSAPENT ETHYL
     Indication: Cardiovascular disorder
     Dosage: 4G PER DAY
     Route: 048

REACTIONS (1)
  - Myocardial infarction [Recovered/Resolved]
